FAERS Safety Report 19977941 (Version 1)
Quarter: 2021Q4

REPORT INFORMATION
  Report Type: Spontaneous
  Country: GB (occurrence: GB)
  Receive Date: 20211020
  Receipt Date: 20211020
  Transmission Date: 20220303
  Serious: Yes (Hospitalization, Other)
  Sender: FDA-Public Use
  Company Number: None

PATIENT
  Age: 56 Year
  Sex: Female
  Weight: 58 kg

DRUGS (13)
  1. CLARITHROMYCIN [Suspect]
     Active Substance: CLARITHROMYCIN
     Indication: Ill-defined disorder
     Dosage: UNK
     Route: 065
     Dates: start: 20211014
  2. APIXABAN [Concomitant]
     Active Substance: APIXABAN
     Indication: Ill-defined disorder
     Dosage: 1 DF, BID
     Route: 065
     Dates: start: 20210625
  3. BECONASE AQ [Concomitant]
     Active Substance: BECLOMETHASONE DIPROPIONATE MONOHYDRATE
     Indication: Ill-defined disorder
     Dosage: 2 DF, BID
     Route: 065
     Dates: start: 20210726, end: 20210823
  4. CETIRIZINE [Concomitant]
     Active Substance: CETIRIZINE HYDROCHLORIDE
     Indication: Ill-defined disorder
     Dosage: 1 DF, QD
     Route: 065
     Dates: start: 20210625
  5. EPILIM [Concomitant]
     Active Substance: VALPROATE SODIUM
     Indication: Ill-defined disorder
     Dosage: 1 DF, QN
     Route: 065
     Dates: start: 20210625
  6. BECLOMETHASONE\FORMOTEROL [Concomitant]
     Active Substance: BECLOMETHASONE\FORMOTEROL
     Indication: Ill-defined disorder
     Dosage: 2 DF, BID
     Route: 065
     Dates: start: 20210611
  7. INVITA D3 [Concomitant]
     Indication: Ill-defined disorder
     Dosage: 2 DF, QD
     Route: 065
     Dates: start: 20210625
  8. KEMADRIN [Concomitant]
     Active Substance: PROCYCLIDINE HYDROCHLORIDE
     Indication: Ill-defined disorder
     Dosage: 1 DF, TID
     Route: 065
     Dates: start: 20210625
  9. LEVOTHYROXINE [Concomitant]
     Active Substance: LEVOTHYROXINE
     Indication: Ill-defined disorder
     Dosage: 1 DF, QD (EACH MORNING)
     Route: 065
     Dates: start: 20210625
  10. OMEPRAZOLE [Concomitant]
     Active Substance: OMEPRAZOLE
     Indication: Ill-defined disorder
     Dosage: UNK, BID
     Route: 065
     Dates: start: 20210625
  11. LITHIUM [Concomitant]
     Active Substance: LITHIUM
     Indication: Ill-defined disorder
     Dosage: 1 DF, QN
     Route: 065
     Dates: start: 20210625
  12. RISPERIDONE [Concomitant]
     Active Substance: RISPERIDONE
     Indication: Ill-defined disorder
     Dosage: 1 DF, QN
     Route: 065
     Dates: start: 20210625
  13. VENTOLIN [Concomitant]
     Active Substance: ALBUTEROL SULFATE
     Indication: Ill-defined disorder
     Dosage: UNK, INHALE 2 DOSES AS NEEDED UP TO FOUR TIMES DAILY
     Route: 065
     Dates: start: 20210318

REACTIONS (1)
  - Adverse drug reaction [Recovering/Resolving]

NARRATIVE: CASE EVENT DATE: 20211014
